FAERS Safety Report 5271584-9 (Version None)
Quarter: 2007Q1

REPORT INFORMATION
  Report Type: 
  Country: None (occurrence: None)
  Receive Date: 20070321
  Receipt Date: 20070309
  Transmission Date: 20070707
  Serious: Yes (Death)
  Sender: FDA-Public Use
  Company Number: GR-PFIZER INC-2007018297

PATIENT
  Sex: Male
  Weight: 100 kg

DRUGS (4)
  1. SU-011,248 [Suspect]
     Indication: GASTROINTESTINAL STROMAL TUMOUR
     Route: 048
     Dates: start: 20060703, end: 20070306
  2. ACCURETIC [Concomitant]
     Route: 048
  3. NEXIUM [Concomitant]
     Route: 048
     Dates: start: 20060401
  4. EPOETIN BETA [Concomitant]
     Route: 058
     Dates: start: 20060501

REACTIONS (3)
  - DEATH [None]
  - DIARRHOEA [None]
  - PYREXIA [None]
